FAERS Safety Report 8052111-X (Version None)
Quarter: 2012Q1

REPORT INFORMATION
  Report Type: 
  Country: None (occurrence: None)
  Receive Date: 20120118
  Receipt Date: 20120112
  Transmission Date: 20120608
  Serious: Yes (Other)
  Sender: FDA-Public Use
  Company Number: US-PFIZER INC-2012010183

PATIENT
  Sex: Female
  Weight: 72.562 kg

DRUGS (3)
  1. PRISTIQ [Suspect]
     Indication: STRESS
     Dosage: 50 MG, 1X/DAY
     Route: 048
     Dates: start: 20110201
  2. BYSTOLIC [Concomitant]
     Dosage: 10 MG, UNK
  3. PREMARIN [Concomitant]
     Dosage: UNK

REACTIONS (2)
  - HYPERTENSION [None]
  - MALAISE [None]
